FAERS Safety Report 6536947-X (Version None)
Quarter: 2010Q1

REPORT INFORMATION
  Report Type: 
  Country: None (occurrence: None)
  Receive Date: 20100105
  Receipt Date: 20091222
  Transmission Date: 20100710
  Serious: Yes (Hospitalization)
  Sender: FDA-Public Use
  Company Number: 004302

PATIENT
  Age: 80 Year
  Sex: Male

DRUGS (1)
  1. MACUGEN [Suspect]
     Indication: MACULAR DEGENERATION
     Dosage: 0.3MG (INTRAOCULAR)
     Route: 031
     Dates: start: 20090316, end: 20091217

REACTIONS (2)
  - INJECTION SITE HAEMORRHAGE [None]
  - VITREOUS HAEMORRHAGE [None]
